FAERS Safety Report 9547578 (Version 1)
Quarter: 2013Q3

REPORT INFORMATION
  Report Type: Spontaneous
  Country: US (occurrence: None)
  Receive Date: 20130920
  Receipt Date: 20130920
  Transmission Date: 20140515
  Serious: Yes (Hospitalization)
  Sender: FDA-Public Use
  Company Number: HYP201308-000042

PATIENT
  Age: 4 Month
  Sex: Male
  Weight: 9.3 kg

DRUGS (4)
  1. RAVICTI [Suspect]
     Indication: AMINO ACID METABOLISM DISORDER
     Dosage: 0.75 ML AND UNSPECIFIED INCREMENTAL DOSES, TID, ORAL
     Route: 048
     Dates: start: 20130527, end: 201307
  2. CITRULLINE [Concomitant]
  3. ARGININE [Concomitant]
  4. PHENOBARBITAL [Concomitant]

REACTIONS (2)
  - Retching [None]
  - Endocarditis bacterial [None]
